FAERS Safety Report 5381362-8 (Version None)
Quarter: 2007Q2

REPORT INFORMATION
  Report Type: 
  Country: None (occurrence: None)
  Receive Date: 20070629
  Receipt Date: 20070430
  Transmission Date: 20071010
  Serious: Yes (Other)
  Sender: FDA-Public Use
  Company Number: US-JNJFOC-20070500194

PATIENT
  Age: 20 Year
  Sex: Male

DRUGS (1)
  1. ULTRAM ER [Suspect]
     Indication: DRUG USE FOR UNKNOWN INDICATION
     Dosage: 100 MG, ORAL
     Route: 048

REACTIONS (1)
  - GRAND MAL CONVULSION [None]
